FAERS Safety Report 8216223 (Version 3)
Quarter: 2013Q3

REPORT INFORMATION
  Report Type: Spontaneous
  Country: FR (occurrence: FR)
  Receive Date: 20111031
  Receipt Date: 20130814
  Transmission Date: 20140515
  Serious: Yes (Hospitalization, Other)
  Sender: FDA-Public Use
  Company Number: PHHY2011FR94976

PATIENT
  Age: 62 Year
  Sex: Male

DRUGS (2)
  1. VOLTARENE LP [Suspect]
     Indication: PAIN
     Dosage: 75 MG, UNK
     Route: 048
     Dates: end: 201110
  2. MONOALGIC [Suspect]
     Indication: PAIN
     Dosage: 300 MG, UNK

REACTIONS (6)
  - Osteomyelitis chronic [Not Recovered/Not Resolved]
  - Primary sequestrum [Unknown]
  - Bone lesion [Unknown]
  - Osteonecrosis [Unknown]
  - Purulent discharge [Unknown]
  - Concomitant disease aggravated [Recovered/Resolved]
